FAERS Safety Report 16762033 (Version 1)
Quarter: 2019Q3

REPORT INFORMATION
  Report Type: Spontaneous
  Country: US (occurrence: US)
  Receive Date: 20190830
  Receipt Date: 20190830
  Transmission Date: 20191005
  Serious: Yes (Death, Other)
  Sender: FDA-Public Use
  Company Number: US-SUNOVION-2019SUN003617

PATIENT
  Sex: Male

DRUGS (1)
  1. LATUDA [Suspect]
     Active Substance: LURASIDONE HYDROCHLORIDE
     Indication: BIPOLAR DISORDER
     Dosage: UNK (ADJUSTED MULTIPLE TIMES)
     Route: 048

REACTIONS (6)
  - Suicidal ideation [Unknown]
  - Completed suicide [Fatal]
  - Product dose omission [Unknown]
  - Muscle disorder [Unknown]
  - Hyperhidrosis [Unknown]
  - Mental disorder [Unknown]
